FAERS Safety Report 14118535 (Version 1)
Quarter: 2017Q4

REPORT INFORMATION
  Report Type: Report from Study
  Country: None (occurrence: US)
  Receive Date: 20171024
  Receipt Date: 20171024
  Transmission Date: 20180321
  Serious: Yes (Other)
  Sender: FDA-Public Use
  Company Number: US-ABBVIE-17K-163-1984414-00

PATIENT
  Sex: Female

DRUGS (3)
  1. TRAMADOL. [Concomitant]
     Active Substance: TRAMADOL
     Indication: BACK PAIN
  2. TRAMADOL. [Concomitant]
     Active Substance: TRAMADOL
     Indication: NECK PAIN
  3. HUMIRA [Suspect]
     Active Substance: ADALIMUMAB
     Indication: RHEUMATOID ARTHRITIS
     Route: 058
     Dates: start: 201606, end: 201706

REACTIONS (9)
  - Deafness transitory [Recovered/Resolved]
  - Ear infection [Unknown]
  - Pharyngitis [Unknown]
  - Middle ear effusion [Unknown]
  - Tinnitus [Not Recovered/Not Resolved]
  - Pharyngitis [Recovered/Resolved]
  - Psoriasis [Unknown]
  - Fatigue [Recovered/Resolved]
  - Vertigo [Unknown]

NARRATIVE: CASE EVENT DATE: 2017
